FAERS Safety Report 9889710 (Version 2)
Quarter: 2014Q1

REPORT INFORMATION
  Report Type: Spontaneous
  Country: FR (occurrence: FR)
  Receive Date: 20140211
  Receipt Date: 20140226
  Transmission Date: 20141002
  Serious: Yes (Hospitalization)
  Sender: FDA-Public Use
  Company Number: FR-PFIZER INC-2014036806

PATIENT
  Age: 90 Year
  Sex: Female

DRUGS (1)
  1. INIPOMP [Suspect]
     Dosage: 20 MG, DAILY
     Route: 048
     Dates: end: 20131224

REACTIONS (2)
  - Hyponatraemia [Recovered/Resolved]
  - Bronchitis [Unknown]
